FAERS Safety Report 5836758-4 (Version None)
Quarter: 2008Q3

REPORT INFORMATION
  Report Type: 
  Country: None (occurrence: None)
  Receive Date: 20080807
  Receipt Date: 20080807
  Transmission Date: 20090109
  Serious: Yes (Hospitalization)
  Sender: FDA-Public Use
  Company Number: PHHO2006CN01082

PATIENT
  Sex: Female
  Weight: 42 kg

DRUGS (6)
  1. ERL 080A ERL+TAB [Suspect]
     Indication: RENAL TRANSPLANT
     Dosage: 720 MG, BID
     Route: 048
     Dates: start: 20051207
  2. NEORAL [Concomitant]
     Indication: RENAL TRANSPLANT
     Dosage: 75 MG, BID
     Route: 048
     Dates: start: 20051202, end: 20051205
  3. NEORAL [Concomitant]
     Dosage: 100 MG QD, 75 MG QN
     Route: 048
     Dates: start: 20051206
  4. PREDNISONE [Concomitant]
     Indication: RENAL TRANSPLANT
     Dosage: 5 MG / DAY
     Route: 048
     Dates: start: 20051205
  5. PREDNISONE [Concomitant]
     Dosage: 40 MG / DAY
     Route: 048
     Dates: start: 20051211
  6. PREDNISONE [Concomitant]
     Dosage: 30 MG / DAY
     Route: 048
     Dates: start: 20051212

REACTIONS (5)
  - BLOOD CREATININE INCREASED [None]
  - BLOOD UREA INCREASED [None]
  - KIDNEY TRANSPLANT REJECTION [None]
  - OLIGURIA [None]
  - PYREXIA [None]
